FAERS Safety Report 8541145 (Version 2)
Quarter: 2013Q1

REPORT INFORMATION
  Report Type: Report from Study
  Country: JP (occurrence: JP)
  Receive Date: 20120502
  Receipt Date: 20130325
  Transmission Date: 20140127
  Serious: Yes (Hospitalization, Other)
  Sender: FDA-Public Use
  Company Number: JP-ROCHE-1064160

PATIENT
  Age: 35 Year
  Sex: Male

DRUGS (17)
  1. OMALIZUMAB [Suspect]
     Indication: ASTHMA
     Route: 058
     Dates: start: 20100401
  2. OMALIZUMAB [Suspect]
     Route: 065
     Dates: start: 20100415
  3. FLUTICASONE PROPIONATE/SALMETEROL XINAFOATE [Concomitant]
     Route: 065
     Dates: start: 20091224
  4. QVAR [Concomitant]
     Route: 065
     Dates: start: 20090401, end: 20091224
  5. ALVESCO [Concomitant]
     Route: 065
     Dates: start: 20091224
  6. HOKUNALIN [Concomitant]
     Route: 065
     Dates: start: 20100430
  7. SEREVENT [Concomitant]
     Route: 065
     Dates: start: 20090401, end: 20091224
  8. KIPRES [Concomitant]
     Route: 065
     Dates: start: 20090401
  9. TALION (JAPAN) [Concomitant]
     Route: 065
     Dates: start: 20100430
  10. UNIPHYL [Concomitant]
     Route: 065
     Dates: start: 20090401
  11. MEPTIN [Concomitant]
     Route: 065
     Dates: start: 20090401
  12. PARIET [Concomitant]
     Route: 065
     Dates: start: 20100401
  13. SPIRIVA [Concomitant]
     Route: 065
     Dates: start: 20100401
  14. ERYTHROCIN [Concomitant]
     Route: 065
     Dates: start: 20100401, end: 20101028
  15. CLARITH [Concomitant]
     Route: 065
     Dates: start: 20101028
  16. NASONEX [Concomitant]
     Route: 065
     Dates: start: 20100430
  17. MUCODYNE [Concomitant]
     Route: 065
     Dates: start: 20100401

REACTIONS (3)
  - Eosinophilia [Not Recovered/Not Resolved]
  - Sinusitis [Recovering/Resolving]
  - Otitis media [Recovering/Resolving]
